FAERS Safety Report 17009760 (Version 1)
Quarter: 2019Q4

REPORT INFORMATION
  Report Type: Spontaneous
  Country: US (occurrence: US)
  Receive Date: 20191108
  Receipt Date: 20191108
  Transmission Date: 20200122
  Serious: Yes (Other)
  Sender: FDA-Public Use
  Company Number: US-SYNEX-T201907425

PATIENT
  Age: 9 Month
  Sex: Male

DRUGS (3)
  1. INOMAX [Suspect]
     Active Substance: NITRIC OXIDE
     Indication: PULMONARY HYPERTENSION
     Dosage: UNK
     Route: 055
  2. BOSENTAN. [Concomitant]
     Active Substance: BOSENTAN
     Indication: PRODUCT USED FOR UNKNOWN INDICATION
     Dosage: UNK
     Route: 065
  3. SILDENAFIL. [Concomitant]
     Active Substance: SILDENAFIL
     Indication: PRODUCT USED FOR UNKNOWN INDICATION
     Dosage: UNK
     Route: 065

REACTIONS (7)
  - Pneumonia serratia [Unknown]
  - Atrial pressure [Unknown]
  - Paralysis [Unknown]
  - Contraindicated product administered [Unknown]
  - Respiratory failure [Unknown]
  - Right ventricular failure [Unknown]
  - Left-to-right cardiac shunt [Unknown]
